FAERS Safety Report 20184035 (Version 1)
Quarter: 2021Q4

REPORT INFORMATION
  Report Type: Spontaneous
  Country: US (occurrence: US)
  Receive Date: 20211214
  Receipt Date: 20211214
  Transmission Date: 20220303
  Serious: No
  Sender: FDA-Public Use
  Company Number: US-ABBVIE-21K-163-3737985-00

PATIENT
  Sex: Female

DRUGS (1)
  1. IMBRUVICA [Suspect]
     Active Substance: IBRUTINIB
     Indication: Product used for unknown indication
     Route: 048
     Dates: start: 20190108

REACTIONS (14)
  - Swelling [Unknown]
  - Thrombosis [Unknown]
  - Respiratory disorder [Unknown]
  - Gastrointestinal disorder [Unknown]
  - Vomiting [Unknown]
  - Diarrhoea [Unknown]
  - Pneumonia [Unknown]
  - Rash [Unknown]
  - Contusion [Unknown]
  - Muscle spasms [Unknown]
  - Headache [Unknown]
  - Dizziness [Unknown]
  - Confusional state [Unknown]
  - Vision blurred [Unknown]
